FAERS Safety Report 9653095 (Version 1)
Quarter: 2013Q4

REPORT INFORMATION
  Report Type: Spontaneous
  Country: US (occurrence: US)
  Receive Date: 20131029
  Receipt Date: 20131029
  Transmission Date: 20140711
  Serious: No
  Sender: FDA-Public Use
  Company Number: US-BIOGENIDEC-2013BI078608

PATIENT
  Age: 60 Year
  Sex: Female

DRUGS (7)
  1. TECFIDERA [Suspect]
     Indication: MULTIPLE SCLEROSIS
     Route: 048
     Dates: start: 20130605
  2. ABILIFY [Concomitant]
  3. CALCIUM MAGNESIUM 750 [Concomitant]
  4. CAMPRAL [Concomitant]
  5. FLONASE [Concomitant]
  6. FOSAMAX [Concomitant]
  7. GABAPENTIN [Concomitant]

REACTIONS (1)
  - Vomiting [Unknown]
